FAERS Safety Report 4372105-5 (Version None)
Quarter: 2004Q2

REPORT INFORMATION
  Report Type: 
  Country: None (occurrence: None)
  Receive Date: 20040602
  Receipt Date: 20040521
  Transmission Date: 20050107
  Serious: Yes (Hospitalization)
  Sender: FDA-Public Use
  Company Number: JP-JNJFOC-20040504766

PATIENT
  Age: 87 Year
  Sex: Female

DRUGS (8)
  1. LEVOFLOXACIN [Suspect]
     Indication: LOBAR PNEUMONIA
     Dosage: , 1 IN 1 DAY, INTRAVENOUS
     Route: 042
  2. LEVOFLOXACIN [Suspect]
     Indication: LOBAR PNEUMONIA
  3. CLINDAMYCIN HCL [Suspect]
     Indication: LOBAR PNEUMONIA
  4. MOXIFLOXACIN (MOXIFLOXACIN) [Suspect]
     Indication: LOBAR PNEUMONIA
     Dosage: ORAL
     Route: 048
  5. IMIPENEM (IMIPENEM) [Suspect]
     Indication: LOBAR PNEUMONIA
  6. AMIKACIN [Suspect]
     Indication: LOBAR PNEUMONIA
  7. METRONIDAZOLE [Concomitant]
  8. NEOSYNEPHRINE (PHENYLEPHRINE HYDROCHLORIDE) [Concomitant]

REACTIONS (11)
  - BLOOD BICARBONATE DECREASED [None]
  - CULTURE STOOL POSITIVE [None]
  - DIARRHOEA [None]
  - HYPOTENSION [None]
  - NAUSEA [None]
  - PYREXIA [None]
  - SHOCK [None]
  - STAPHYLOCOCCAL INFECTION [None]
  - TACHYCARDIA [None]
  - VOMITING [None]
  - WHITE BLOOD CELL COUNT INCREASED [None]
